FAERS Safety Report 7427495-3 (Version None)
Quarter: 2011Q2

REPORT INFORMATION
  Report Type: 
  Country: None (occurrence: None)
  Receive Date: 20110420
  Receipt Date: 20110414
  Transmission Date: 20111010
  Serious: Yes (Hospitalization)
  Sender: FDA-Public Use
  Company Number: FR-BAYER-2011-033312

PATIENT
  Age: 57 Year
  Sex: Male

DRUGS (2)
  1. NIMOTOP [Suspect]
     Indication: ANEURYSM RUPTURED
     Dosage: 2 DF, Q4HR
     Dates: start: 20110116
  2. METOPROLOL TARTRATE [Suspect]
     Indication: PRODUCT USED FOR UNKNOWN INDICATION
     Dosage: 0.5 DF, BID
     Route: 048

REACTIONS (4)
  - HYPOTENSION [None]
  - PALPITATIONS [None]
  - CHEST PAIN [None]
  - MALAISE [None]
